FAERS Safety Report 7713534-9 (Version None)
Quarter: 2011Q3

REPORT INFORMATION
  Report Type: 
  Country: None (occurrence: None)
  Receive Date: 20110826
  Receipt Date: 20110822
  Transmission Date: 20111222
  Serious: Yes (Life-Threatening, Other)
  Sender: FDA-Public Use
  Company Number: DE-PFIZER INC-2011148935

PATIENT
  Age: 69 Year
  Sex: Female
  Weight: 75 kg

DRUGS (3)
  1. AZULFIDINE [Suspect]
     Indication: SYNOVITIS
  2. CORTISONE [Concomitant]
     Dosage: UNK
  3. AZULFIDINE [Suspect]
     Indication: RHEUMATOID ARTHRITIS
     Dosage: 500-2000MG PER DAY
     Route: 048
     Dates: start: 20110519, end: 20110618

REACTIONS (22)
  - ASTHENIA [None]
  - ANURIA [None]
  - HYPERTENSION [None]
  - RASH GENERALISED [None]
  - DYSGEUSIA [None]
  - ARRHYTHMIA [None]
  - GINGIVITIS [None]
  - STOMATITIS [None]
  - NAUSEA [None]
  - MYALGIA [None]
  - COUGH [None]
  - SLEEP DISORDER [None]
  - THROMBOCYTOPENIA [None]
  - OEDEMA [None]
  - RENAL FUNCTION TEST ABNORMAL [None]
  - HYPERHIDROSIS [None]
  - FATIGUE [None]
  - DECREASED APPETITE [None]
  - BLOOD PRESSURE FLUCTUATION [None]
  - LIVER FUNCTION TEST ABNORMAL [None]
  - HYPERSENSITIVITY [None]
  - FLUSHING [None]
